FAERS Safety Report 23169418 (Version 4)
Quarter: 2023Q4

REPORT INFORMATION
  Report Type: Report from Study
  Country: US (occurrence: US)
  Receive Date: 20231110
  Receipt Date: 20231122
  Transmission Date: 20240110
  Serious: Yes (Hospitalization)
  Sender: FDA-Public Use
  Company Number: US-ABBVIE-5489150

PATIENT
  Age: 52 Year
  Sex: Male

DRUGS (2)
  1. DUOPA [Suspect]
     Active Substance: CARBIDOPA\LEVODOPA
     Indication: Parkinson^s disease
     Dosage: START DATE: NOV 2023?(100ML X 7)?2 CASSETES?FORM STRENGTH:4.63-20MG/ML?FREQUENCY: ADMINISTER CONT...
     Route: 050
  2. DUOPA [Suspect]
     Active Substance: CARBIDOPA\LEVODOPA
     Dosage: 2 CASSETES?FORM STRENGTH:4.63-20MG/ML?ADMINISTER CONTENTS OF 2 CASSETTES VIA PEG-J FOR UP TO?24 H...
     Route: 050
     Dates: start: 202107, end: 20231103

REACTIONS (2)
  - Knee arthroplasty [Unknown]
  - Device breakage [Not Recovered/Not Resolved]

NARRATIVE: CASE EVENT DATE: 20231103
